FAERS Safety Report 12697818 (Version 1)
Quarter: 2016Q3

REPORT INFORMATION
  Report Type: Spontaneous
  Country: US (occurrence: None)
  Receive Date: 20160829
  Receipt Date: 20160829
  Transmission Date: 20161109
  Serious: Yes (Hospitalization)
  Sender: FDA-Public Use
  Company Number: None

PATIENT
  Age: 83 Year
  Sex: Male
  Weight: 77.6 kg

DRUGS (11)
  1. AMIODARONE (PACERONE) [Concomitant]
  2. VALSARTAN (DIOVAN) [Concomitant]
  3. XARELTO [Suspect]
     Active Substance: RIVAROXABAN
     Indication: ATRIAL FIBRILLATION
     Route: 048
  4. MULTIPLE VITAMINS-MINERALS (THERAPEUTIC MULTIVAMIN-MINERALS) [Concomitant]
  5. ASPIRIN. [Concomitant]
     Active Substance: ASPIRIN
  6. CHOLECALCIFEROL (VITAMIN D) [Concomitant]
  7. METOPROLOL (LOPRESSOR) [Concomitant]
  8. XARELTO [Concomitant]
     Active Substance: RIVAROXABAN
  9. PROSCAR [Concomitant]
     Active Substance: FINASTERIDE
  10. TERAZOSIN (HYTRIN) [Concomitant]
  11. ROSUVASTATIN (CRESTOR) [Concomitant]

REACTIONS (6)
  - Traumatic haematoma [None]
  - Limb injury [None]
  - Peripheral swelling [None]
  - Pain in extremity [None]
  - Fall [None]
  - Blister [None]

NARRATIVE: CASE EVENT DATE: 20160824
